FAERS Safety Report 19398211 (Version 1)
Quarter: 2021Q2

REPORT INFORMATION
  Report Type: Spontaneous
  Country: IN (occurrence: IN)
  Receive Date: 20210610
  Receipt Date: 20210610
  Transmission Date: 20210717
  Serious: Yes (Other)
  Sender: FDA-Public Use
  Company Number: IN-MACLEODS PHARMACEUTICALS LTD-MAC2021031383

PATIENT

DRUGS (1)
  1. AMLODIPINE 10 MG TABLET [Suspect]
     Active Substance: AMLODIPINE BESYLATE
     Indication: ESSENTIAL HYPERTENSION
     Dosage: 10 MILLIGRAM, QD, TOOK AMLODIPINE TABLETS ON AND OFF IN THE LAST 2 MONTHS
     Route: 065

REACTIONS (2)
  - Generalised bullous fixed drug eruption [Recovered/Resolved]
  - Post inflammatory pigmentation change [Not Recovered/Not Resolved]
